FAERS Safety Report 18979566 (Version 3)
Quarter: 2021Q2

REPORT INFORMATION
  Report Type: Report from Study
  Country: EG (occurrence: EG)
  Receive Date: 20210308
  Receipt Date: 20210409
  Transmission Date: 20210717
  Serious: Yes (Other)
  Sender: FDA-Public Use
  Company Number: EG-REGENERON PHARMACEUTICALS, INC.-2021-30223

PATIENT

DRUGS (1)
  1. EYLEA [Suspect]
     Active Substance: AFLIBERCEPT
     Indication: RETINAL VEIN OCCLUSION
     Dosage: UNK, EYE UNK; TOTAL NUMBER OF DOSES UNK; LAST DOSE UNK
     Route: 031
     Dates: start: 201902

REACTIONS (1)
  - Eye operation [Unknown]
